FAERS Safety Report 19304586 (Version 3)
Quarter: 2022Q1

REPORT INFORMATION
  Report Type: Report from Study
  Country: US (occurrence: US)
  Receive Date: 20210526
  Receipt Date: 20220218
  Transmission Date: 20220423
  Serious: No
  Sender: FDA-Public Use
  Company Number: NVSC2021US112706

PATIENT
  Age: 60 Year
  Sex: Female

DRUGS (1)
  1. COSENTYX [Suspect]
     Active Substance: SECUKINUMAB
     Indication: Psoriasis
     Dosage: 300 MG, QW (Q WEEK FOR 5 WEEKS THEN Q 4 WEEKS)
     Route: 058
     Dates: start: 20210225

REACTIONS (6)
  - Arthralgia [Unknown]
  - Injection site pain [Unknown]
  - SARS-CoV-2 test positive [Unknown]
  - Cough [Unknown]
  - Sneezing [Unknown]
  - Fatigue [Unknown]

NARRATIVE: CASE EVENT DATE: 20210430
